FAERS Safety Report 9354275 (Version 2)
Quarter: 2014Q2

REPORT INFORMATION
  Report Type: Report from Study
  Country: DE (occurrence: TR)
  Receive Date: 20130618
  Receipt Date: 20140418
  Transmission Date: 20141212
  Serious: Yes (Death, Hospitalization)
  Sender: FDA-Public Use
  Company Number: DE-ACTELION-A-US2013-84697

PATIENT
  Age: 71 Year
  Sex: Female

DRUGS (1)
  1. VENTAVIS [Suspect]
     Indication: PULMONARY ARTERIAL HYPERTENSION
     Dosage: 9X/DAY
     Route: 055
     Dates: start: 20120127

REACTIONS (4)
  - Myocardial infarction [Fatal]
  - Nephrolithiasis [Recovered/Resolved]
  - Cystitis [Recovered/Resolved]
  - Feeling abnormal [Recovered/Resolved]
